FAERS Safety Report 7047795-9 (Version None)
Quarter: 2010Q4

REPORT INFORMATION
  Report Type: 
  Country: None (occurrence: None)
  Receive Date: 20101015
  Receipt Date: 20101005
  Transmission Date: 20110411
  Serious: Yes (Other)
  Sender: FDA-Public Use
  Company Number: US-PFIZER INC-2010127019

PATIENT
  Sex: Female
  Weight: 43.084 kg

DRUGS (7)
  1. DETROL [Suspect]
     Indication: HYPERTONIC BLADDER
     Dosage: UNK
     Route: 048
     Dates: start: 20080101
  2. ABILIFY [Concomitant]
     Dosage: UNK
  3. ALPRAZOLAM [Concomitant]
     Dosage: UNK
  4. ATIVAN [Concomitant]
     Dosage: UNK
  5. NEURONTIN [Concomitant]
     Dosage: UNK
  6. PERCOCET [Concomitant]
     Indication: BACK PAIN
     Dosage: UNK
  7. TRAZODONE [Concomitant]
     Dosage: UNK

REACTIONS (2)
  - ADVERSE REACTION [None]
  - NEOPLASM MALIGNANT [None]
